FAERS Safety Report 4579861-1 (Version None)
Quarter: 2005Q1

REPORT INFORMATION
  Report Type: 
  Country: None (occurrence: None)
  Receive Date: 20050214
  Receipt Date: 20050202
  Transmission Date: 20050727
  Serious: Yes (Hospitalization)
  Sender: FDA-Public Use
  Company Number: 200510417FR

PATIENT
  Age: 80 Year
  Sex: Male

DRUGS (9)
  1. LASILIX 40 MG [Suspect]
     Route: 048
     Dates: start: 20041217, end: 20041229
  2. ERYTHROCIN 1% [Suspect]
     Route: 042
     Dates: start: 20041215, end: 20041231
  3. SOLU-MEDROL [Suspect]
     Route: 042
     Dates: start: 20041217, end: 20041227
  4. VECTARION [Suspect]
     Route: 048
     Dates: start: 20041217, end: 20041229
  5. ATARAX [Concomitant]
     Route: 048
     Dates: start: 20041217
  6. HYDROCORTISONE [Concomitant]
  7. FORADIL [Concomitant]
     Route: 055
  8. ACETAMINOPHEN [Concomitant]
  9. OMEPRAZOLE [Concomitant]
     Route: 048

REACTIONS (2)
  - BLOOD CREATINE PHOSPHOKINASE INCREASED [None]
  - MYOGLOBIN BLOOD INCREASED [None]
